FAERS Safety Report 8784705 (Version 1)
Quarter: 2012Q4

REPORT INFORMATION
  Report Type: 
  Country: JP (occurrence: JP)
  Receive Date: 20120914
  Receipt Date: 20120914
  Transmission Date: 20130627
  Serious: Yes (Life-Threatening)
  Sender: FDA-Public Use
  Company Number: JP-PFIZER INC-2012223348

PATIENT
  Age: 90 Year
  Sex: Female

DRUGS (2)
  1. UNASYN-S [Suspect]
     Route: 042
  2. SEFIROM [Suspect]
     Dosage: UNK
     Dates: start: 20120910

REACTIONS (1)
  - Stevens-Johnson syndrome [Recovered/Resolved]
